FAERS Safety Report 7738711-2 (Version None)
Quarter: 2011Q3

REPORT INFORMATION
  Report Type: 
  Country: None (occurrence: None)
  Receive Date: 20110908
  Receipt Date: 20110902
  Transmission Date: 20111222
  Serious: No
  Sender: FDA-Public Use
  Company Number: PR-PFIZER INC-2005057679

PATIENT
  Sex: Female

DRUGS (1)
  1. BEXTRA [Suspect]
     Dosage: DAILY
     Route: 048
     Dates: start: 20050312, end: 20050412

REACTIONS (2)
  - URTICARIA [None]
  - PRURITUS [None]
